FAERS Safety Report 23771706 (Version 2)
Quarter: 2024Q2

REPORT INFORMATION
  Report Type: Spontaneous
  Country: US (occurrence: US)
  Receive Date: 20240423
  Receipt Date: 20240628
  Transmission Date: 20240715
  Serious: No
  Sender: FDA-Public Use
  Company Number: US-002147023-NVSC2024US083659

PATIENT

DRUGS (3)
  1. COSENTYX [Suspect]
     Active Substance: SECUKINUMAB
     Indication: Arthritis
     Dosage: 150 MG, QMO
     Route: 065
  2. COSENTYX [Suspect]
     Active Substance: SECUKINUMAB
     Dosage: 300 MG
     Route: 065
  3. RASUVO [Suspect]
     Active Substance: METHOTREXATE SODIUM
     Indication: Product used for unknown indication
     Dosage: 20 MG
     Route: 065

REACTIONS (6)
  - Pain [Unknown]
  - Joint stiffness [Unknown]
  - Tendon disorder [Unknown]
  - Skin disorder [Unknown]
  - Arthritis [Unknown]
  - Drug ineffective [Unknown]
